FAERS Safety Report 7973732-6 (Version None)
Quarter: 2011Q4

REPORT INFORMATION
  Report Type: 
  Country: None (occurrence: None)
  Receive Date: 20111209
  Receipt Date: 20111201
  Transmission Date: 20120403
  Serious: Yes (Death, Other)
  Sender: FDA-Public Use
  Company Number: 2011MA001741

PATIENT
  Age: 68 Year
  Sex: Male

DRUGS (6)
  1. ENOXAPARIN SODIUM [Concomitant]
  2. DEXAMETHASONE TAB [Concomitant]
  3. MORPHINE [Concomitant]
  4. GABAPENTIN [Suspect]
     Indication: NEURALGIA
     Dosage: 600 MG, TID, PO
     Route: 048
     Dates: start: 20070701, end: 20110210
  5. LENALIDOMIDE [Suspect]
     Indication: MYELOMA RECURRENCE
     Dosage: 25 MG, QD, PO
     Route: 048
     Dates: start: 20091001, end: 20100902
  6. FINASTERIDE [Concomitant]

REACTIONS (3)
  - PLATELET COUNT DECREASED [None]
  - FALL [None]
  - IDIOPATHIC THROMBOCYTOPENIC PURPURA [None]
